FAERS Safety Report 5585514-3 (Version None)
Quarter: 2008Q1

REPORT INFORMATION
  Report Type: 
  Country: None (occurrence: None)
  Receive Date: 20080109
  Receipt Date: 20080102
  Transmission Date: 20080703
  Serious: Yes (Life-Threatening, Disabling, Other)
  Sender: FDA-Public Use
  Company Number: A0697734A

PATIENT
  Age: 68 Year
  Sex: Female
  Weight: 64.1 kg

DRUGS (6)
  1. AVANDIA [Suspect]
     Dosage: 4MG TWICE PER DAY
     Route: 048
     Dates: start: 20060101
  2. TOPROL-XL [Concomitant]
  3. NORVASC [Concomitant]
  4. VASOTEC [Concomitant]
  5. ASPIRIN [Concomitant]
  6. METFORMIN HCL [Concomitant]
     Dosage: 500MG TWICE PER DAY

REACTIONS (21)
  - AORTIC CALCIFICATION [None]
  - ATELECTASIS [None]
  - CARDIAC FAILURE CONGESTIVE [None]
  - DILATATION ATRIAL [None]
  - DYSPNOEA [None]
  - GASTROINTESTINAL OEDEMA [None]
  - LEFT VENTRICULAR DYSFUNCTION [None]
  - LEFT VENTRICULAR HYPERTROPHY [None]
  - MITRAL VALVE CALCIFICATION [None]
  - MITRAL VALVE DISEASE [None]
  - MITRAL VALVE INCOMPETENCE [None]
  - OEDEMA PERIPHERAL [None]
  - PLEURAL EFFUSION [None]
  - PULMONARY ARTERIAL PRESSURE ABNORMAL [None]
  - PULMONARY CONGESTION [None]
  - PULMONARY HYPERTENSION [None]
  - PULMONARY OEDEMA [None]
  - RESPIRATORY FAILURE [None]
  - SKIN OEDEMA [None]
  - TRICUSPID VALVE INCOMPETENCE [None]
  - VENOUS PRESSURE INCREASED [None]
